FAERS Safety Report 4291348-2 (Version None)
Quarter: 2004Q1

REPORT INFORMATION
  Report Type: 
  Country: None (occurrence: None)
  Receive Date: 20040126
  Receipt Date: 20031028
  Transmission Date: 20041129
  Serious: No
  Sender: FDA-Public Use
  Company Number: USA031051007

PATIENT
  Age: 73 Year
  Sex: Female

DRUGS (2)
  1. FORTEO [Suspect]
     Indication: OSTEOPOROSIS
     Dosage: 20UG/DAY
     Dates: start: 20030401
  2. PRAVACHOL [Concomitant]
     Indication: BLOOD CHOLESTEROL
     Dates: end: 20031001

REACTIONS (3)
  - ARTHRALGIA [None]
  - FATIGUE [None]
  - PAIN IN EXTREMITY [None]
